FAERS Safety Report 15084471 (Version 4)
Quarter: 2019Q1

REPORT INFORMATION
  Report Type: Spontaneous
  Country: BR (occurrence: BR)
  Receive Date: 20180628
  Receipt Date: 20190205
  Transmission Date: 20190417
  Serious: Yes (Death, Other)
  Sender: FDA-Public Use
  Company Number: BR-ASTELLAS-2018US029206

PATIENT
  Sex: Male

DRUGS (7)
  1. CRIZOTINIB [Suspect]
     Active Substance: CRIZOTINIB
     Indication: LUNG CANCER METASTATIC
     Route: 065
     Dates: start: 201604
  2. ERLOTINIB [Suspect]
     Active Substance: ERLOTINIB
     Indication: LUNG CANCER METASTATIC
     Dosage: UNK UNK, UNKNOWN FREQ.
     Route: 065
     Dates: start: 201311, end: 201410
  3. GEMCITABINE [Suspect]
     Active Substance: GEMCITABINE\GEMCITABINE HYDROCHLORIDE
     Indication: LUNG CANCER METASTATIC
     Dosage: UNK UNK, UNKNOWN FREQ.
     Route: 065
     Dates: start: 201507, end: 201510
  4. NIVOLUMAB [Suspect]
     Active Substance: NIVOLUMAB
     Dosage: 3 MG/KG, EVERY 2 WEEKS FOR 8 CYCLES
     Route: 065
     Dates: start: 201604
  5. CARBOPLATIN. [Concomitant]
     Active Substance: CARBOPLATIN
     Indication: LUNG NEOPLASM MALIGNANT
     Dosage: UNK UNK, UNKNOWN FREQ.
     Route: 065
     Dates: start: 201109
  6. PEMETREXED. [Concomitant]
     Active Substance: PEMETREXED
     Indication: LUNG NEOPLASM MALIGNANT
     Dosage: UNK UNK, UNKNOWN FREQ.
     Route: 065
     Dates: start: 201109
  7. NIVOLUMAB [Suspect]
     Active Substance: NIVOLUMAB
     Indication: LUNG CANCER METASTATIC
     Dosage: 3 MG/KG, EVERY 3 WEEKS FOR 4 CYCLES
     Route: 065
     Dates: start: 201601

REACTIONS (2)
  - Sepsis [Fatal]
  - Bradycardia [Unknown]
